FAERS Safety Report 22044989 (Version 1)
Quarter: 2023Q1

REPORT INFORMATION
  Report Type: Spontaneous
  Country: FR (occurrence: FR)
  Receive Date: 20230228
  Receipt Date: 20230228
  Transmission Date: 20230417
  Serious: Yes (Other)
  Sender: FDA-Public Use
  Company Number: FR-Iscador AG-2023000001

PATIENT
  Age: 75 Year
  Sex: Male

DRUGS (9)
  1. PACLITAXEL [Interacting]
     Active Substance: PACLITAXEL
     Indication: Pancreatic carcinoma metastatic
     Dosage: FIRST COURSE OF CHEMOTHERAPY 230 MILLIGRAMS
  2. WARFARIN [Interacting]
     Active Substance: WARFARIN
     Indication: Atrial fibrillation
  3. WARFARIN [Interacting]
     Active Substance: WARFARIN
     Indication: Arrhythmia
  4. VISCUM ALBUM FRUITING TOP [Concomitant]
     Active Substance: VISCUM ALBUM FRUITING TOP
     Indication: Neoplasm malignant
     Dosage: 10 MG AT D0 AND D2 OF CHEMOTHERAPY
     Route: 058
  5. VISCUM ALBUM FRUITING TOP [Concomitant]
     Active Substance: VISCUM ALBUM FRUITING TOP
     Indication: Gastrointestinal haemorrhage
  6. AMIODARONE [Concomitant]
     Active Substance: AMIODARONE
     Indication: Chronic lymphocytic leukaemia
  7. GEMCITABINE [Concomitant]
     Active Substance: GEMCITABINE
     Indication: Pancreatic carcinoma metastatic
     Dosage: FIRST COURSE CHEMOTHERAPY ?1800 MG
  8. LYSINE ACETYLSALICYLATE [Concomitant]
     Active Substance: ASPIRIN DL-LYSINE
     Indication: Myocardial ischaemia
  9. BISOPROLOL [Concomitant]
     Active Substance: BISOPROLOL
     Indication: Chronic lymphocytic leukaemia

REACTIONS (4)
  - Gastrointestinal haemorrhage [Unknown]
  - Anaemia [Unknown]
  - Drug interaction [Unknown]
  - International normalised ratio increased [Unknown]
